FAERS Safety Report 7075027-4 (Version None)
Quarter: 2010Q4

REPORT INFORMATION
  Report Type: 
  Country: None (occurrence: None)
  Receive Date: 20101029
  Receipt Date: 20100312
  Transmission Date: 20110411
  Serious: No
  Sender: FDA-Public Use
  Company Number: US-WYE-H13418310

PATIENT
  Age: 74 Year
  Sex: Female
  Weight: 61.29 kg

DRUGS (5)
  1. ADVIL PM [Suspect]
     Indication: INSOMNIA
     Dosage: 2 CAPLETS ONCE AT BED TIME
     Route: 048
     Dates: start: 20100129, end: 20100129
  2. ONE-A-DAY [Concomitant]
  3. OSCAL [Concomitant]
  4. LIPITOR [Concomitant]
  5. OMEPRAZOLE [Concomitant]

REACTIONS (3)
  - DRUG INEFFECTIVE [None]
  - FEELING ABNORMAL [None]
  - PSYCHOMOTOR HYPERACTIVITY [None]
